FAERS Safety Report 14026365 (Version 2)
Quarter: 2017Q4

REPORT INFORMATION
  Report Type: Report from Study
  Country: US (occurrence: US)
  Receive Date: 20170929
  Receipt Date: 20171009
  Transmission Date: 20180321
  Serious: Yes (Other)
  Sender: FDA-Public Use
  Company Number: PHEH2017US031051

PATIENT
  Age: 42 Year
  Sex: Female
  Weight: 68.27 kg

DRUGS (2)
  1. COPAXONE [Suspect]
     Active Substance: GLATIRAMER ACETATE
     Indication: MULTIPLE SCLEROSIS
     Route: 065
  2. GLATOPA [Suspect]
     Active Substance: GLATIRAMER ACETATE
     Indication: MULTIPLE SCLEROSIS
     Dosage: 20 MG, QD
     Route: 058
     Dates: start: 20150801

REACTIONS (6)
  - Fall [Unknown]
  - Paralysis [Unknown]
  - Injection site pain [Not Recovered/Not Resolved]
  - Paralysis [Recovered/Resolved]
  - Muscle contracture [Not Recovered/Not Resolved]
  - Paralysis [Recovered/Resolved]

NARRATIVE: CASE EVENT DATE: 20150801
